FAERS Safety Report 26190034 (Version 1)
Quarter: 2025Q4

REPORT INFORMATION
  Report Type: Spontaneous
  Country: IN (occurrence: IN)
  Receive Date: 20251223
  Receipt Date: 20251223
  Transmission Date: 20260117
  Serious: Yes (Disabling, Other)
  Sender: CIPLA
  Company Number: IN-MLMSERVICE-20251203-PI737215-00296-1

PATIENT

DRUGS (1)
  1. SILDENAFIL [Suspect]
     Active Substance: SILDENAFIL
     Indication: Loss of libido
     Dosage: 100 MILLIGRAM, SINGLE
     Route: 048

REACTIONS (3)
  - Retinal vein occlusion [Recovering/Resolving]
  - Retinal ischaemia [Recovering/Resolving]
  - Retinal haemorrhage [Recovering/Resolving]
